FAERS Safety Report 8582203-8 (Version None)
Quarter: 2012Q2

REPORT INFORMATION
  Report Type: 
  Country: None (occurrence: None)
  Receive Date: 20120423
  Receipt Date: 20100820
  Transmission Date: 20120825
  Serious: Yes (Other)
  Sender: FDA-Public Use
  Company Number: PHHY2010US52517

PATIENT
  Age: 57 Year
  Sex: Male
  Weight: 74.5 kg

DRUGS (9)
  1. OXYCONTIN [Concomitant]
  2. PROAIR HFA (SALBUTAMOL SULFATE) [Concomitant]
  3. CELEXA [Concomitant]
  4. DILAUDID [Concomitant]
  5. LEXAPRO [Concomitant]
  6. HYDREA [Concomitant]
  7. EXJADE [Suspect]
     Indication: SICKLE CELL ANAEMIA
     Dosage: 2000 MG DAILY, ORAL
     Route: 048
     Dates: start: 20100505
  8. METHADONE HYDROCHLORIDE [Concomitant]
  9. FOLIC ACID [Concomitant]

REACTIONS (4)
  - ABDOMINAL DISCOMFORT [None]
  - BLOOD CREATININE INCREASED [None]
  - HAEMOGLOBIN DECREASED [None]
  - RENAL FAILURE [None]
